FAERS Safety Report 11599027 (Version 1)
Quarter: 2015Q4

REPORT INFORMATION
  Report Type: Spontaneous
  Country: US (occurrence: US)
  Receive Date: 20151006
  Receipt Date: 20151006
  Transmission Date: 20160304
  Serious: Yes (Other)
  Sender: FDA-Public Use
  Company Number: US-CELGENE-163-21880-14011623

PATIENT

DRUGS (4)
  1. CARFILZOMIB [Suspect]
     Active Substance: CARFILZOMIB
     Indication: PLASMA CELL MYELOMA
     Dosage: 20/36 MG/M2
     Route: 041
  2. REVLIMID [Suspect]
     Active Substance: LENALIDOMIDE
     Indication: PLASMA CELL MYELOMA
     Route: 048
  3. DEXAMETHASONE. [Suspect]
     Active Substance: DEXAMETHASONE
     Indication: PLASMA CELL MYELOMA
     Dosage: 20/10 MG
     Route: 041
  4. REVLIMID [Suspect]
     Active Substance: LENALIDOMIDE
     Route: 048

REACTIONS (32)
  - Dyspnoea [Unknown]
  - Neutropenia [Unknown]
  - Ear disorder [Unknown]
  - Lung disorder [Unknown]
  - Nutritional condition abnormal [Unknown]
  - Liver function test abnormal [Unknown]
  - Infection [Unknown]
  - Leukopenia [Unknown]
  - Renal disorder [Unknown]
  - Metabolic disorder [Unknown]
  - Rash [Unknown]
  - General physical condition abnormal [Unknown]
  - Musculoskeletal disorder [Unknown]
  - Unevaluable event [Unknown]
  - Cardiac failure congestive [Unknown]
  - Lymphopenia [Unknown]
  - Thrombocytopenia [Unknown]
  - Mood altered [Unknown]
  - Electrolyte imbalance [Unknown]
  - Angiopathy [Unknown]
  - Endocrine disorder [Unknown]
  - Haemorrhage [Unknown]
  - Blood creatinine increased [Unknown]
  - Infusion related reaction [Unknown]
  - Neuropathy peripheral [Unknown]
  - Anaemia [Unknown]
  - Skin disorder [Unknown]
  - Hyperglycaemia [Unknown]
  - Gastrointestinal disorder [Unknown]
  - Hepatobiliary disease [Unknown]
  - Urogenital disorder [Unknown]
  - Cardiac disorder [Unknown]
